FAERS Safety Report 11049466 (Version 1)
Quarter: 2015Q2

REPORT INFORMATION
  Report Type: Spontaneous
  Country: US (occurrence: US)
  Receive Date: 20150420
  Receipt Date: 20150420
  Transmission Date: 20150821
  Serious: Yes (Death)
  Sender: FDA-Public Use
  Company Number: US-EXELIXIS-CABO-13003553

PATIENT
  Age: 78 Year
  Sex: Male
  Weight: 92.27 kg

DRUGS (2)
  1. COMETRIQ [Suspect]
     Active Substance: CABOZANTINIB S-MALATE
     Indication: THYROID CANCER
     Dosage: 60 MG, QD
     Route: 048
     Dates: start: 20130719, end: 20130828
  2. COMETRIQ [Suspect]
     Active Substance: CABOZANTINIB S-MALATE
     Dosage: 40 MG, QD
     Route: 048
     Dates: start: 20141204, end: 20150302

REACTIONS (8)
  - Malignant neoplasm progression [Unknown]
  - Nausea [Not Recovered/Not Resolved]
  - Sinusitis [Unknown]
  - Dyspepsia [Unknown]
  - Death [Fatal]
  - Palmar-plantar erythrodysaesthesia syndrome [Unknown]
  - Nasopharyngitis [Unknown]
  - Cough [Unknown]

NARRATIVE: CASE EVENT DATE: 2013
